FAERS Safety Report 4695231-X (Version None)
Quarter: 2005Q2

REPORT INFORMATION
  Report Type: 
  Country: None (occurrence: None)
  Receive Date: 20050614
  Receipt Date: 20050110
  Transmission Date: 20051028
  Serious: No
  Sender: FDA-Public Use
  Company Number: USA041184542

PATIENT
  Age: 47 Year
  Sex: Male
  Weight: 124 kg

DRUGS (4)
  1. CIALIS [Suspect]
     Indication: ERECTILE DYSFUNCTION
     Dosage: 20 MG AS NEEDED
     Dates: start: 20040601
  2. DIOVAN [Concomitant]
  3. ALLEGRA [Concomitant]
  4. ZOCOR (SIMVASTATIN RATIOPHARM) [Concomitant]

REACTIONS (3)
  - BLOOD CREATINE PHOSPHOKINASE INCREASED [None]
  - CHEST PAIN [None]
  - ELECTROCARDIOGRAM ST-T CHANGE [None]
